FAERS Safety Report 11629090 (Version 2)
Quarter: 2015Q4

REPORT INFORMATION
  Report Type: Spontaneous
  Country: BR (occurrence: BR)
  Receive Date: 20151014
  Receipt Date: 20151106
  Transmission Date: 20160304
  Serious: Yes (Other)
  Sender: FDA-Public Use
  Company Number: BR-PFIZER INC-2015340674

PATIENT
  Age: 35 Year
  Sex: Male

DRUGS (1)
  1. GENOTROPIN [Suspect]
     Active Substance: SOMATROPIN
     Indication: HYPOPITUITARISM
     Dosage: 1.05 MG, 7X/WEEK
     Route: 058
     Dates: start: 20150923

REACTIONS (2)
  - Ankle fracture [Unknown]
  - Somnolence [Unknown]

NARRATIVE: CASE EVENT DATE: 20150923
